FAERS Safety Report 14215986 (Version 1)
Quarter: 2017Q4

REPORT INFORMATION
  Report Type: Spontaneous
  Country: US (occurrence: US)
  Receive Date: 20171122
  Receipt Date: 20171122
  Transmission Date: 20180321
  Serious: No
  Sender: FDA-Public Use
  Company Number: US-PFIZER INC-2017501856

PATIENT
  Age: 80 Year
  Sex: Male
  Weight: 104.31 kg

DRUGS (1)
  1. ATROPINE SULFATE/DIPHENOXYLATE HYDROCHLORIDE [Suspect]
     Active Substance: ATROPINE SULFATE\DIPHENOXYLATE HYDROCHLORIDE
     Indication: DIARRHOEA
     Dosage: [ATROPINE SULFATE 0.025]/[DIPHENOXYLATE HCL 2.5], 2X/DAY
     Route: 048

REACTIONS (1)
  - Drug ineffective [Unknown]
